FAERS Safety Report 6816898-3 (Version None)
Quarter: 2010Q3

REPORT INFORMATION
  Report Type: 
  Country: None (occurrence: None)
  Receive Date: 20100706
  Receipt Date: 20100628
  Transmission Date: 20110219
  Serious: Yes (Hospitalization)
  Sender: FDA-Public Use
  Company Number: FR-ASTRAZENECA-2010SE30935

PATIENT
  Age: 887 Month
  Sex: Female

DRUGS (6)
  1. NEXIUM [Suspect]
     Route: 048
  2. NEXIUM [Suspect]
     Route: 048
  3. AVLOCARDYL [Suspect]
     Route: 048
  4. NOVONORM [Suspect]
     Indication: DIABETES MELLITUS
     Route: 048
     Dates: end: 20100401
  5. IMOVANE [Suspect]
     Route: 048
     Dates: end: 20100501
  6. XANAX [Suspect]
     Indication: INSOMNIA
     Route: 048
     Dates: end: 20100501

REACTIONS (3)
  - ANAEMIA HAEMOLYTIC AUTOIMMUNE [None]
  - DRUG INEFFECTIVE [None]
  - WEIGHT DECREASED [None]
